FAERS Safety Report 25789730 (Version 1)
Quarter: 2025Q3

REPORT INFORMATION
  Report Type: Spontaneous
  Country: US (occurrence: US)
  Receive Date: 20250911
  Receipt Date: 20250911
  Transmission Date: 20251020
  Serious: Yes (Other)
  Sender: PACIRA
  Company Number: US-ORG100016242-2025000353

PATIENT
  Age: 49 Year
  Sex: Female

DRUGS (1)
  1. EXPAREL [Suspect]
     Active Substance: BUPIVACAINE
     Indication: Tenoplasty
     Route: 065
     Dates: start: 20250820, end: 20250820

REACTIONS (3)
  - Peroneal nerve injury [Unknown]
  - Therapeutic response prolonged [Unknown]
  - Motor dysfunction [Unknown]
